FAERS Safety Report 11242909 (Version 12)
Quarter: 2017Q3

REPORT INFORMATION
  Report Type: Spontaneous
  Country: JP (occurrence: JP)
  Receive Date: 20150707
  Receipt Date: 20170926
  Transmission Date: 20171127
  Serious: Yes (Death, Life-Threatening, Hospitalization, Other)
  Sender: FDA-Public Use
  Company Number: JP-ACTELION-A-CH2015-120145

PATIENT
  Age: 3 Year
  Sex: Male
  Weight: 10 kg

DRUGS (50)
  1. URSODEOXYCHOLIC ACID [Suspect]
     Active Substance: URSODIOL
     Indication: LIVER DISORDER
     Dosage: 99 MG, QD
     Route: 048
     Dates: start: 20130127
  2. PROGRAF [Suspect]
     Active Substance: TACROLIMUS\TACROLIMUS ANHYDROUS
     Dosage: 0.5 MG, QD
     Route: 048
     Dates: start: 20161108, end: 20170427
  3. EXCEGRAN [Suspect]
     Active Substance: ZONISAMIDE
     Indication: EPILEPSY
     Dosage: 80 MG, QD
     Route: 048
     Dates: start: 20150917, end: 20170427
  4. BIOFERMIN [Suspect]
     Active Substance: BACILLUS SUBTILIS\LACTOBACILLUS ACIDOPHILUS\STREPTOCOCCUS FAECAIS
     Indication: DIARRHOEA
     Dosage: 1.2 G, QD
     Route: 048
     Dates: start: 20160219, end: 20170309
  5. FAMOTIDINE. [Concomitant]
     Active Substance: FAMOTIDINE
     Indication: GASTRIC ULCER
     Dosage: 5 MG, BID
     Route: 048
     Dates: start: 20150910, end: 20150915
  6. DAIPHEN [Concomitant]
     Active Substance: SULFAMETHOXAZOLE\TRIMETHOPRIM
     Dosage: 0.5 MG, BID
     Route: 048
     Dates: end: 20160415
  7. TAKEPRON [Concomitant]
     Active Substance: LANSOPRAZOLE
  8. OXYGEN. [Concomitant]
     Active Substance: OXYGEN
  9. BIOFERMIN R [Concomitant]
     Active Substance: BACILLUS SUBTILIS\LACTOBACILLUS ACIDOPHILUS\STREPTOCOCCUS FAECAIS
  10. BENFOTIAMINE [Concomitant]
     Active Substance: BENFOTIAMINE
  11. BISOLVON [Concomitant]
     Active Substance: BROMHEXINE HYDROCHLORIDE
  12. E KEPPRA [Suspect]
     Active Substance: LEVETIRACETAM
     Indication: EPILEPSY
     Dosage: 100 MG, BID
     Route: 048
     Dates: start: 20150713, end: 20151001
  13. BICARBONATE [Suspect]
     Active Substance: BICARBONATE ION
     Indication: PRODUCT USED FOR UNKNOWN INDICATION
     Dosage: 0.5 G, QD
     Route: 048
     Dates: start: 20150603, end: 20170427
  14. GABALON [Suspect]
     Active Substance: BACLOFEN
     Indication: MUSCLE TONE DISORDER
     Dosage: 1.13 MG, TID
     Route: 048
     Dates: start: 20151027, end: 20160725
  15. TIZANIDINE. [Suspect]
     Active Substance: TIZANIDINE
     Indication: HYPERTONIA
     Dosage: 0.4 MG, QD
     Route: 048
     Dates: start: 20150415
  16. BOTOX [Suspect]
     Active Substance: ONABOTULINUMTOXINA
     Indication: MUSCLE SPASMS
     Dosage: 60 U, QD
     Route: 030
     Dates: start: 20160317, end: 20160428
  17. BACTERIA NOS [Concomitant]
  18. MEROPENEM. [Concomitant]
     Active Substance: MEROPENEM
  19. HYALURONATE NA [Suspect]
     Active Substance: HYALURONATE SODIUM
     Indication: DRY EYE
     Dosage: 3 DF, QD
     Route: 047
     Dates: start: 20150521, end: 20170427
  20. TIZANIDINE. [Suspect]
     Active Substance: TIZANIDINE
     Dosage: 0.86 MG, TID
     Route: 048
     Dates: end: 20170427
  21. RIVOTRIL [Suspect]
     Active Substance: CLONAZEPAM
     Indication: EPILEPSY
     Dosage: 0.8 MG, QD
     Route: 048
     Dates: start: 20151110, end: 20170427
  22. FAMOTIDINE. [Concomitant]
     Active Substance: FAMOTIDINE
     Dosage: 5 MG, BID
     Route: 048
     Dates: start: 20151113, end: 20160415
  23. ADEROXAL [Concomitant]
     Active Substance: PYRIDOXAL PHOSPHATE
  24. VICCILLIN [Concomitant]
     Active Substance: AMPICILLIN
  25. GLYCYRON [Suspect]
     Active Substance: AMMONIUM GLYCYRRHIZATE\GLYCINE\METHIONINE
     Indication: LIVER DISORDER
     Dosage: 0.99 DF, QD
     Route: 048
     Dates: start: 20140314, end: 20170427
  26. ULCERLMIN [Suspect]
     Active Substance: SUCRALFATE
     Indication: GASTRIC ULCER
     Dosage: 0.999 G, QD
     Route: 048
     Dates: start: 20160317, end: 20170427
  27. DAIPHEN [Concomitant]
     Active Substance: SULFAMETHOXAZOLE\TRIMETHOPRIM
     Indication: PNEUMONIA ASPIRATION
     Dosage: 0.4 MG, BID
     Route: 048
     Dates: start: 20150415
  28. MUCOSAL [Concomitant]
  29. BRAZAVES [Suspect]
     Active Substance: MIGLUSTAT
     Dosage: 100 MG, OD
     Route: 048
     Dates: start: 20150428, end: 20150530
  30. BRAZAVES [Suspect]
     Active Substance: MIGLUSTAT
     Dosage: 100 MG, BID
     Route: 048
     Dates: start: 20160627, end: 20170427
  31. E KEPPRA [Suspect]
     Active Substance: LEVETIRACETAM
     Dosage: 100 MG, BID
     Route: 048
     Dates: start: 20151029, end: 20151113
  32. CELLCEPT [Concomitant]
     Active Substance: MYCOPHENOLATE MOFETIL\MYCOPHENOLATE MOFETIL HYDROCHLORIDE
     Indication: GRAFT VERSUS HOST DISEASE
     Dosage: 50 MG, BID
     Route: 048
     Dates: start: 20151008, end: 20160415
  33. CARBOCISTEINE [Concomitant]
     Active Substance: CARBOCYSTEINE
  34. HERBAL EXTRACT NOS [Concomitant]
     Active Substance: HERBALS
  35. URALYT U [Concomitant]
  36. PROGRAF [Suspect]
     Active Substance: TACROLIMUS\TACROLIMUS ANHYDROUS
     Indication: LIVER TRANSPLANT
     Dosage: 0.2 MG, QD
     Route: 048
     Dates: start: 20120919, end: 20161107
  37. MARZULENE [Suspect]
     Active Substance: SODIUM GUALENATE
     Indication: GASTRODUODENAL ULCER
     Dosage: 0.498 G, QD
     Route: 048
     Dates: start: 20150719, end: 20170427
  38. DAIKENCHUTO [Suspect]
     Active Substance: HERBALS
     Indication: GASTROINTESTINAL MOTILITY DISORDER
     Dosage: 3 G, QD
     Route: 048
     Dates: start: 20160427, end: 20170427
  39. SODIUM ALGINATE [Concomitant]
     Active Substance: SODIUM ALGINATE
  40. CEFEPIME HYDROCHLORIDE. [Concomitant]
     Active Substance: CEFEPIME HYDROCHLORIDE
  41. BRAZAVES [Suspect]
     Active Substance: MIGLUSTAT
     Indication: NIEMANN-PICK DISEASE
     Dosage: 100 MG, BID
     Route: 048
     Dates: start: 20150531, end: 20160615
  42. URSODEOXYCHOLIC ACID [Suspect]
     Active Substance: URSODIOL
     Dosage: 150 G, QD
     Route: 048
     Dates: end: 20170427
  43. SINGULAIR [Suspect]
     Active Substance: MONTELUKAST SODIUM
     Indication: ASTHMA
     Dosage: 4 MG, QD
     Route: 048
     Dates: start: 20150311, end: 20170427
  44. PREDNISOLONE. [Suspect]
     Active Substance: PREDNISOLONE
     Indication: GRAFT VERSUS HOST DISEASE
     Dosage: 2.5 MG, QD
     Route: 048
     Dates: start: 20150904
  45. WIDECILLIN [Concomitant]
     Active Substance: AMOXICILLIN
  46. AMIKACIN SULFATE. [Concomitant]
     Active Substance: AMIKACIN SULFATE
  47. PULMICORT TURBUHALER [Suspect]
     Active Substance: BUDESONIDE
     Indication: ASTHMA
     Dosage: 0.5 MG, QD
     Route: 055
     Dates: start: 20150311, end: 20160615
  48. PREDNISOLONE. [Suspect]
     Active Substance: PREDNISOLONE
     Dosage: 5 MG, QD
     Route: 048
     Dates: end: 20160615
  49. PROMAC [Concomitant]
     Active Substance: NITROFURANTOIN
  50. L-CARNITIN [Concomitant]

REACTIONS (27)
  - Aspartate aminotransferase increased [Recovering/Resolving]
  - Neutrophil count decreased [Not Recovered/Not Resolved]
  - Urine leukocyte esterase positive [Recovered/Resolved]
  - Pneumonia aspiration [Recovered/Resolved]
  - Respiratory failure [Fatal]
  - Status epilepticus [Recovering/Resolving]
  - Infection [Recovered/Resolved]
  - Hepatic function abnormal [Recovered/Resolved]
  - Autoimmune neutropenia [Not Recovered/Not Resolved]
  - Nasopharyngitis [Recovering/Resolving]
  - Respiratory tract infection [Fatal]
  - Multiple organ dysfunction syndrome [Not Recovered/Not Resolved]
  - Hypercapnia [Recovering/Resolving]
  - Tracheal haemorrhage [Fatal]
  - Pyrexia [Recovering/Resolving]
  - Radius fracture [Not Recovered/Not Resolved]
  - Urinary tract infection [Recovered/Resolved]
  - Epilepsy [Recovering/Resolving]
  - Liver transplant rejection [Unknown]
  - Clonic convulsion [Recovering/Resolving]
  - Alanine aminotransferase increased [Recovering/Resolving]
  - Drug-induced liver injury [Recovering/Resolving]
  - Disseminated intravascular coagulation [Fatal]
  - White blood cell count decreased [Not Recovered/Not Resolved]
  - Culture urine positive [Recovered/Resolved]
  - Antineutrophil cytoplasmic antibody positive [Not Recovered/Not Resolved]
  - Transfusion [Unknown]

NARRATIVE: CASE EVENT DATE: 20150617
